FAERS Safety Report 21139515 (Version 1)
Quarter: 2022Q3

REPORT INFORMATION
  Report Type: Spontaneous
  Country: EG (occurrence: EG)
  Receive Date: 20220727
  Receipt Date: 20220727
  Transmission Date: 20221026
  Serious: Yes (Hospitalization, Other)
  Sender: FDA-Public Use
  Company Number: EG-BoehringerIngelheim-2022-BI-182970

PATIENT
  Sex: Male

DRUGS (3)
  1. OFEV [Suspect]
     Active Substance: NINTEDANIB
     Indication: Pulmonary fibrosis
     Dates: start: 20220223, end: 20220526
  2. DIFLUCAN [Concomitant]
     Active Substance: FLUCONAZOLE
     Indication: Product used for unknown indication
     Dosage: PATIENT RECEIVED DIFLUCAN 150MG CAPSULES STARTING FROM 20 APRIL 2022 UNTIL 6 MAY 2022 AS ONE CAPSULE
     Dates: start: 20220420, end: 20220506
  3. DIFLUCAN [Concomitant]
     Active Substance: FLUCONAZOLE
     Dosage: 2 CAPSULES PER WEEK
     Dates: end: 20220614

REACTIONS (10)
  - Fatigue [Unknown]
  - Weight decreased [Unknown]
  - Oxygen saturation decreased [Unknown]
  - Insomnia [Unknown]
  - Gastrooesophageal reflux disease [Unknown]
  - Upper respiratory fungal infection [Unknown]
  - Asthenia [Unknown]
  - Fungal infection [Unknown]
  - Bacterial infection [Unknown]
  - Off label use [Unknown]

NARRATIVE: CASE EVENT DATE: 20220101
